FAERS Safety Report 8278585-7 (Version None)
Quarter: 2012Q2

REPORT INFORMATION
  Report Type: 
  Country: None (occurrence: None)
  Receive Date: 20120412
  Receipt Date: 20120329
  Transmission Date: 20120825
  Serious: Yes (Hospitalization)
  Sender: FDA-Public Use
  Company Number: GB-PFIZER INC-2012087170

PATIENT
  Age: 42 Year
  Sex: Female

DRUGS (1)
  1. EPIPEN [Suspect]
     Dosage: UNK
     Dates: start: 20120212

REACTIONS (3)
  - ACCIDENTAL EXPOSURE [None]
  - PAIN IN EXTREMITY [None]
  - APPLICATION SITE PAIN [None]
